FAERS Safety Report 25223301 (Version 2)
Quarter: 2025Q2

REPORT INFORMATION
  Report Type: Report from Study
  Country: CA (occurrence: CA)
  Receive Date: 20250422
  Receipt Date: 20250423
  Transmission Date: 20250716
  Serious: Yes (Other)
  Sender: DR REDDYS
  Company Number: CA-E2BLSMVVAL-CLI/CAN/24/0007346

PATIENT
  Age: 71 Year
  Sex: Female

DRUGS (2)
  1. ZOLEDRONIC ACID [Suspect]
     Active Substance: ZOLEDRONIC ACID
     Indication: Osteoporosis
     Dosage: 5MG/100ML;
     Route: 065
     Dates: start: 20171129, end: 20171129
  2. ZOLEDRONIC ACID [Suspect]
     Active Substance: ZOLEDRONIC ACID
     Dosage: 5MG/100ML; ??MOST RECENT OR LAST TREATMENT RECEIVED ON 19-MAR-2024
     Route: 065
     Dates: start: 20240319, end: 20240319

REACTIONS (2)
  - Non-Hodgkin^s lymphoma recurrent [Unknown]
  - Adverse drug reaction [Unknown]

NARRATIVE: CASE EVENT DATE: 20250403
